FAERS Safety Report 19046539 (Version 1)
Quarter: 2021Q1

REPORT INFORMATION
  Report Type: Spontaneous
  Country: US (occurrence: US)
  Receive Date: 20210323
  Receipt Date: 20210323
  Transmission Date: 20210420
  Serious: Yes (Other)
  Sender: FDA-Public Use
  Company Number: US-BAYER-2021-108902

PATIENT

DRUGS (2)
  1. CORICIDIN HBP CHEST CONGESTION AND COUGH [Concomitant]
     Active Substance: DEXTROMETHORPHAN HYDROBROMIDE\GUAIFENESIN
  2. ASPIRIN (CARDIO) [Suspect]
     Active Substance: ASPIRIN
     Route: 065

REACTIONS (1)
  - Gastric haemorrhage [Unknown]
